FAERS Safety Report 5626356-X (Version None)
Quarter: 2008Q1

REPORT INFORMATION
  Report Type: 
  Country: None (occurrence: None)
  Receive Date: 20080213
  Receipt Date: 20080213
  Transmission Date: 20080703
  Serious: Yes (Other)
  Sender: FDA-Public Use
  Company Number: None

PATIENT
  Sex: Male
  Weight: 74.11 kg

DRUGS (1)
  1. OPTIRAY 320 [Suspect]
     Indication: COMPUTERISED TOMOGRAM
     Dosage: 125ML

REACTIONS (3)
  - CONTRAST MEDIA REACTION [None]
  - NO REACTION ON PREVIOUS EXPOSURE TO DRUG [None]
  - URTICARIA [None]
